FAERS Safety Report 24992408 (Version 4)
Quarter: 2025Q2

REPORT INFORMATION
  Report Type: Spontaneous
  Country: JP (occurrence: JP)
  Receive Date: 20250220
  Receipt Date: 20250402
  Transmission Date: 20250716
  Serious: Yes (Hospitalization, Other)
  Sender: JOHNSON AND JOHNSON
  Company Number: JP-JNJFOC-20250238226

PATIENT
  Age: 9 Decade
  Sex: Female

DRUGS (4)
  1. OPSUMIT [Suspect]
     Active Substance: MACITENTAN
     Indication: Pulmonary arterial hypertension
     Route: 048
  2. UPTRAVI [Suspect]
     Active Substance: SELEXIPAG
     Indication: Pulmonary arterial hypertension
     Route: 048
     Dates: start: 202412, end: 20241226
  3. UPTRAVI [Suspect]
     Active Substance: SELEXIPAG
     Dosage: 0.4MG IN THE MORNING, 0.2MG IN THE EVENING
     Route: 048
     Dates: start: 20241210, end: 202412
  4. ADEMPAS [Concomitant]
     Active Substance: RIOCIGUAT
     Indication: Pulmonary arterial hypertension
     Route: 065

REACTIONS (4)
  - Pulmonary oedema [Recovered/Resolved]
  - Cardiac failure [Unknown]
  - Pulmonary arterial hypertension [Unknown]
  - Coronary artery disease [Unknown]

NARRATIVE: CASE EVENT DATE: 20241224
